FAERS Safety Report 18930665 (Version 2)
Quarter: 2021Q1

REPORT INFORMATION
  Report Type: Spontaneous
  Country: JP (occurrence: JP)
  Receive Date: 20210223
  Receipt Date: 20210316
  Transmission Date: 20210420
  Serious: Yes (Other)
  Sender: FDA-Public Use
  Company Number: JP-PFIZER INC-2020360524

PATIENT
  Age: 9 Decade
  Sex: Female

DRUGS (3)
  1. BAVENCIO [Suspect]
     Active Substance: AVELUMAB
     Indication: RENAL CANCER
     Dosage: UNK
     Route: 041
     Dates: start: 20200915
  2. INLYTA [Suspect]
     Active Substance: AXITINIB
     Dosage: 4 MG, DAILY
     Dates: start: 2020
  3. INLYTA [Suspect]
     Active Substance: AXITINIB
     Indication: RENAL CANCER
     Dosage: 6 MG, DAILY
     Route: 048
     Dates: start: 20200915, end: 2020

REACTIONS (2)
  - Hypothyroidism [Unknown]
  - Proctitis [Unknown]

NARRATIVE: CASE EVENT DATE: 20210115
